FAERS Safety Report 5930059-1 (Version None)
Quarter: 2008Q4

REPORT INFORMATION
  Report Type: 
  Country: None (occurrence: None)
  Receive Date: 20081024
  Receipt Date: 20081014
  Transmission Date: 20090506
  Serious: No
  Sender: FDA-Public Use
  Company Number: US-B.I. PHARMACEUTICALS,INC./RIDGEFIELD-2007-BP-17487BP

PATIENT
  Sex: Female

DRUGS (8)
  1. SPIRIVA [Suspect]
     Indication: CHRONIC OBSTRUCTIVE PULMONARY DISEASE
     Dosage: 18MCG
     Route: 055
     Dates: start: 20061212, end: 20080603
  2. SEREVENT [Concomitant]
     Indication: CHRONIC OBSTRUCTIVE PULMONARY DISEASE
     Route: 055
  3. ESTRADIOL [Concomitant]
     Indication: HORMONE REPLACEMENT THERAPY
  4. TRIAMTERENE AND HYDROCHLOROTHIAZIDE [Concomitant]
     Indication: SWELLING
     Route: 048
     Dates: start: 20061201
  5. LEVOXYL [Concomitant]
     Indication: THYROID DISORDER
  6. ALBUTEROL [Concomitant]
     Indication: CHRONIC OBSTRUCTIVE PULMONARY DISEASE
     Dates: start: 20000101
  7. ESTROGENIC SUBSTANCE [Concomitant]
  8. DUONEB [Concomitant]
     Indication: CHRONIC OBSTRUCTIVE PULMONARY DISEASE
     Dates: start: 20000101

REACTIONS (8)
  - DRY MOUTH [None]
  - DRY SKIN [None]
  - DRY THROAT [None]
  - DYSPHAGIA [None]
  - JOINT SWELLING [None]
  - MYALGIA [None]
  - OEDEMA PERIPHERAL [None]
  - URINARY RETENTION [None]
